FAERS Safety Report 7929665-4 (Version None)
Quarter: 2011Q4

REPORT INFORMATION
  Report Type: 
  Country: None (occurrence: None)
  Receive Date: 20111121
  Receipt Date: 20111116
  Transmission Date: 20120403
  Serious: Yes (Hospitalization)
  Sender: FDA-Public Use
  Company Number: CA-PFIZER INC-2011276924

PATIENT
  Sex: Male

DRUGS (1)
  1. INSPRA [Suspect]
     Indication: CARDIAC FAILURE
     Dosage: UNK

REACTIONS (1)
  - HYPONATRAEMIA [None]
